FAERS Safety Report 6024492-X (Version None)
Quarter: 2008Q4

REPORT INFORMATION
  Report Type: 
  Country: None (occurrence: None)
  Receive Date: 20081231
  Receipt Date: 20080916
  Transmission Date: 20090506
  Serious: Yes (Life-Threatening, Hospitalization)
  Sender: FDA-Public Use
  Company Number: US-BRISTOL-MYERS SQUIBB COMPANY-14332845

PATIENT
  Age: 59 Year
  Sex: Male
  Weight: 93 kg

DRUGS (7)
  1. ORENCIA [Suspect]
     Indication: RHEUMATOID ARTHRITIS
     Dosage: GIVEN IN 100ML SALINE INFUSION.
     Route: 041
     Dates: start: 20080710, end: 20080710
  2. HYDROXYCHLOROQUINE SULFATE [Concomitant]
  3. THEOPHYLLINE [Concomitant]
  4. MONTELUKAST SODIUM [Concomitant]
  5. MINOCYCLINE HCL [Concomitant]
  6. ALENDRONATE SODIUM [Concomitant]
  7. PREDNISOLONE [Concomitant]

REACTIONS (1)
  - ANAPHYLACTIC SHOCK [None]
